FAERS Safety Report 5751343-0 (Version None)
Quarter: 2008Q2

REPORT INFORMATION
  Report Type: 
  Country: None (occurrence: None)
  Receive Date: 20080528
  Receipt Date: 20080516
  Transmission Date: 20081010
  Serious: Yes (Death)
  Sender: FDA-Public Use
  Company Number: FR-PFIZER INC-2008043114

PATIENT
  Sex: Male

DRUGS (8)
  1. MEDROL [Suspect]
     Route: 048
  2. PREVISCAN [Suspect]
     Indication: ATRIAL FIBRILLATION
     Dosage: TEXT:TDD: 2DF
     Route: 048
  3. DERINOX [Suspect]
     Route: 055
  4. CARBIDOPA AND LEVODOPA [Concomitant]
     Indication: PARKINSON'S DISEASE
     Dosage: TEXT:50 MG/200 MG
     Route: 048
  5. BISOPROLOL [Concomitant]
     Indication: CARDIAC FAILURE
     Dosage: DAILY DOSE:2.5MG
     Route: 048
  6. ALFUZOSIN HCL [Concomitant]
     Indication: DYSURIA
     Dosage: DAILY DOSE:10MG
     Route: 048
  7. FUROSEMIDE [Concomitant]
     Indication: HYPERTENSION
     Dosage: DAILY DOSE:40MG
     Route: 048
  8. PANTOPRAZOLE SODIUM [Concomitant]
     Indication: PROPHYLAXIS
     Dosage: DAILY DOSE:40MG
     Route: 048

REACTIONS (1)
  - HAEMATOMA [None]
